FAERS Safety Report 24223838 (Version 1)
Quarter: 2024Q3

REPORT INFORMATION
  Report Type: Spontaneous
  Country: US (occurrence: US)
  Receive Date: 20240819
  Receipt Date: 20240819
  Transmission Date: 20241017
  Serious: No
  Sender: Haleon PLC
  Company Number: US-HALEON-2192119

PATIENT
  Age: 73 Year
  Sex: Male

DRUGS (9)
  1. FLONASE ALLERGY RELIEF [Suspect]
     Active Substance: FLUTICASONE PROPIONATE
     Indication: Sinus disorder
     Dosage: 1 SPRAY PER NOSTRIL IN THE MORNING AND 2 SPRAYS PER NOSTRIL AT NIGHT
  2. FLONASE ALLERGY RELIEF [Suspect]
     Active Substance: FLUTICASONE PROPIONATE
     Dosage: 1 SPRAY PER NOSTRIL IN THE MORNING AND 2 SPRAYS PER NOSTRIL AT NIGHT
  3. FLONASE ALLERGY RELIEF [Suspect]
     Active Substance: FLUTICASONE PROPIONATE
     Dosage: 1 SPRAY PER NOSTRIL IN THE MORNING AND 2 SPRAYS PER NOSTRIL AT NIGHT
  4. FLONASE ALLERGY RELIEF [Suspect]
     Active Substance: FLUTICASONE PROPIONATE
     Dosage: 1 SPRAY PER NOSTRIL IN THE MORNING AND 2 SPRAYS PER NOSTRIL AT NIGHT
  5. FLONASE ALLERGY RELIEF [Suspect]
     Active Substance: FLUTICASONE PROPIONATE
     Dosage: 1 SPRAY PER NOSTRIL IN THE MORNING AND 2 SPRAYS PER NOSTRIL AT NIGHT
  6. FLONASE ALLERGY RELIEF [Suspect]
     Active Substance: FLUTICASONE PROPIONATE
     Dosage: 1 SPRAY PER NOSTRIL IN THE MORNING AND 2 SPRAYS PER NOSTRIL AT NIGHT
  7. FLONASE ALLERGY RELIEF [Suspect]
     Active Substance: FLUTICASONE PROPIONATE
     Dosage: 1 SPRAY PER NOSTRIL IN THE MORNING AND 2 SPRAYS PER NOSTRIL AT NIGHT
  8. FLONASE ALLERGY RELIEF [Suspect]
     Active Substance: FLUTICASONE PROPIONATE
     Dosage: 1 SPRAY PER NOSTRIL IN THE MORNING AND 2 SPRAYS PER NOSTRIL AT NIGHT
  9. FLONASE ALLERGY RELIEF [Suspect]
     Active Substance: FLUTICASONE PROPIONATE
     Dosage: 1 SPRAY PER NOSTRIL IN THE MORNING AND 2 SPRAYS PER NOSTRIL AT NIGHT

REACTIONS (1)
  - Product use in unapproved indication [Unknown]
